FAERS Safety Report 9378035 (Version 1)
Quarter: 2013Q3

REPORT INFORMATION
  Report Type: Spontaneous
  Country: US (occurrence: US)
  Receive Date: 20130701
  Receipt Date: 20130701
  Transmission Date: 20140515
  Serious: Yes (Hospitalization)
  Sender: FDA-Public Use
  Company Number: US-GLAXOSMITHKLINE-A0806125A

PATIENT
  Age: 63 Year
  Sex: Male
  Weight: 108.6 kg

DRUGS (1)
  1. AVANDIA [Suspect]
     Indication: DIABETES MELLITUS
     Dosage: 8MG PER DAY
     Route: 048
     Dates: start: 199912

REACTIONS (4)
  - Cerebrovascular accident [Fatal]
  - Cardiac failure [Unknown]
  - Cardiac failure congestive [Unknown]
  - Anaemia [Unknown]
